FAERS Safety Report 5609518-7 (Version None)
Quarter: 2008Q1

REPORT INFORMATION
  Report Type: 
  Country: None (occurrence: None)
  Receive Date: 20080131
  Receipt Date: 20080117
  Transmission Date: 20080703
  Serious: Yes (Other)
  Sender: FDA-Public Use
  Company Number: ZA-ELI_LILLY_AND_COMPANY-ZA200801004495

PATIENT
  Age: 55 Year
  Sex: Male

DRUGS (16)
  1. EXENATIDE [Suspect]
     Indication: DIABETES MELLITUS
     Dosage: 5 UG, 2/D
     Route: 058
     Dates: start: 20071212
  2. EXENATIDE [Suspect]
     Dosage: 10 U, 2/D
     Route: 058
     Dates: start: 20080101, end: 20080106
  3. NORVASC [Concomitant]
     Indication: HYPERTENSION
     Dosage: 10 MG, UNKNOWN
     Route: 065
  4. ASPIRIN [Concomitant]
     Indication: PROPHYLAXIS
     Dosage: 100 MG, DAILY (1/D)
     Route: 065
  5. GLUCOPHAGE [Concomitant]
     Indication: DIABETES MELLITUS
     Dosage: 1 G, 2/D
     Route: 065
  6. COAPROVEL [Concomitant]
     Indication: HYPERTENSION
     Dosage: 300 MG, DAILY (1/D)
     Route: 065
  7. ZOCOR [Concomitant]
     Indication: BLOOD CHOLESTEROL INCREASED
     Dosage: 20 MG, UNKNOWN
     Route: 065
  8. LEVEMIR [Concomitant]
     Indication: DIABETES MELLITUS
     Dosage: 6 U, 2/D
     Route: 065
     Dates: start: 20070601
  9. HUMALOG [Concomitant]
     Indication: DIABETES MELLITUS
     Dosage: UNK UNK, AS NEEDED
     Route: 058
     Dates: start: 20070601
  10. PHYSIOTENS [Concomitant]
     Indication: HYPERTENSION
     Dosage: 0.3 MBQ, UNKNOWN
     Route: 065
     Dates: start: 20071201, end: 20080104
  11. PHYSIOTENS [Concomitant]
     Dosage: 0.3 MBQ, DAILY (1/D)
     Route: 065
     Dates: start: 20080107
  12. Q10 [Concomitant]
  13. OMEGA 3 [Concomitant]
  14. OMEGA-6 FATTY ACIDS [Concomitant]
     Dosage: UNK, UNKNOWN
     Route: 065
  15. PSYLLIUM HUSK [Concomitant]
  16. PROCYDIN [Concomitant]
     Dosage: UNK, UNKNOWN
     Route: 065

REACTIONS (11)
  - AMNESIA [None]
  - BLOOD GLUCOSE INCREASED [None]
  - DEPRESSION [None]
  - DIZZINESS [None]
  - DRY MOUTH [None]
  - DYSARTHRIA [None]
  - HYPERHIDROSIS [None]
  - NAUSEA [None]
  - PALLOR [None]
  - SPEECH DISORDER [None]
  - VOMITING [None]
